FAERS Safety Report 5312602-9 (Version None)
Quarter: 2007Q2

REPORT INFORMATION
  Report Type: 
  Country: None (occurrence: None)
  Receive Date: 20070430
  Receipt Date: 20070208
  Transmission Date: 20071010
  Serious: No
  Sender: FDA-Public Use
  Company Number: 2007UW02658

PATIENT
  Age: 71 Year
  Sex: Female
  Weight: 53.5 kg

DRUGS (2)
  1. NEXIUM [Suspect]
     Indication: GASTROOESOPHAGEAL REFLUX DISEASE
     Route: 048
     Dates: start: 20030101
  2. ESTROGEN CREAM [Concomitant]

REACTIONS (2)
  - OSTEOPENIA [None]
  - RESORPTION BONE INCREASED [None]
